FAERS Safety Report 9571261 (Version 2)
Quarter: 2013Q4

REPORT INFORMATION
  Report Type: Report from Study
  Country: US (occurrence: US)
  Receive Date: 20131001
  Receipt Date: 20131001
  Transmission Date: 20140711
  Serious: Yes (Other)
  Sender: FDA-Public Use
  Company Number: US-ASTELLAS-2013US008760

PATIENT
  Age: 59 Year
  Sex: Female
  Weight: 63 kg

DRUGS (16)
  1. ERLOTINIB TABLET [Suspect]
     Indication: NON-SMALL CELL LUNG CANCER
     Dosage: 150 MG, UID/QD
     Route: 048
     Dates: start: 20130607, end: 20130620
  2. ERLOTINIB TABLET [Suspect]
     Dosage: 100 MG, UID/QD
     Route: 048
     Dates: start: 20130626
  3. CABOZANTINIB [Suspect]
     Indication: NON-SMALL CELL LUNG CANCER
     Dosage: 40 MG, UID/QD
     Route: 048
     Dates: start: 20130607, end: 20130620
  4. CABOZANTINIB [Suspect]
     Dosage: 20 MG, UID/QD
     Route: 048
     Dates: start: 20130626
  5. DOXYCYCLINE [Concomitant]
     Indication: PRODUCT USED FOR UNKNOWN INDICATION
     Dosage: 100 MG, BID
     Route: 048
     Dates: start: 20130220
  6. LUNESTA [Concomitant]
     Indication: PRODUCT USED FOR UNKNOWN INDICATION
     Dosage: UNK
     Route: 048
  7. MOTRIN [Concomitant]
     Indication: PRODUCT USED FOR UNKNOWN INDICATION
     Dosage: 600 MG, PRN
     Route: 048
     Dates: start: 20120902
  8. KRILL OIL-OMEGA-3-DHA-EPA [Concomitant]
     Indication: PRODUCT USED FOR UNKNOWN INDICATION
     Dosage: 300-90 MG, QHS
     Route: 065
  9. SYNTHROID [Concomitant]
     Indication: PRODUCT USED FOR UNKNOWN INDICATION
     Dosage: 25 UG, UNKNOWN/D
     Route: 065
  10. EFFEXOR XR [Concomitant]
     Indication: HOT FLUSH
     Dosage: 150 MG, QHS
     Route: 065
     Dates: start: 20120731
  11. EFFEXOR XR [Concomitant]
     Indication: DEPRESSION
  12. AMBIEN [Concomitant]
     Indication: INSOMNIA
     Dosage: 5 MG, PRN
     Route: 048
  13. CLEOCIN T [Concomitant]
     Indication: PRODUCT USED FOR UNKNOWN INDICATION
     Dosage: 1 %, BID
     Route: 061
     Dates: start: 20111129
  14. ZOFRAN                             /00955301/ [Concomitant]
     Indication: NAUSEA
     Dosage: 4 MG, PRN
     Route: 048
     Dates: start: 20120911
  15. ZOFRAN                             /00955301/ [Concomitant]
     Indication: VOMITING
  16. IMODIUM [Concomitant]
     Indication: DIARRHOEA
     Dosage: 2 MG, PRN, QID
     Route: 048
     Dates: start: 20130614

REACTIONS (14)
  - Dehydration [Recovered/Resolved]
  - Malignant neoplasm progression [Unknown]
  - Skin lesion [Recovering/Resolving]
  - Rash pustular [Recovering/Resolving]
  - Diarrhoea [Recovered/Resolved]
  - Dizziness postural [Recovered/Resolved]
  - Blepharitis [Recovered/Resolved]
  - Alopecia [Unknown]
  - Dermatitis acneiform [Recovering/Resolving]
  - Nausea [Recovering/Resolving]
  - Pruritus [Unknown]
  - Fatigue [Unknown]
  - Rash erythematous [Recovered/Resolved]
  - Rash generalised [Recovered/Resolved]
